FAERS Safety Report 14619613 (Version 1)
Quarter: 2018Q1

REPORT INFORMATION
  Report Type: Spontaneous
  Country: IT (occurrence: IT)
  Receive Date: 20180309
  Receipt Date: 20180309
  Transmission Date: 20180509
  Serious: Yes (Other)
  Sender: FDA-Public Use
  Company Number: IT-TEVA-2018-IT-864969

PATIENT
  Age: 20 Year
  Sex: Female

DRUGS (2)
  1. AZITROMICINA TEVA [Suspect]
     Active Substance: AZITHROMYCIN
     Indication: PYREXIA
  2. AZITROMICINA TEVA [Suspect]
     Active Substance: AZITHROMYCIN
     Indication: INFLUENZA
     Route: 048
     Dates: start: 201802, end: 201802

REACTIONS (4)
  - Intestinal obstruction [Not Recovered/Not Resolved]
  - Dizziness [Not Recovered/Not Resolved]
  - Pruritus [Not Recovered/Not Resolved]
  - Blood immunoglobulin E increased [Not Recovered/Not Resolved]

NARRATIVE: CASE EVENT DATE: 201802
